FAERS Safety Report 21948518 (Version 1)
Quarter: 2023Q1

REPORT INFORMATION
  Report Type: Spontaneous
  Country: US (occurrence: US)
  Receive Date: 20230203
  Receipt Date: 20230203
  Transmission Date: 20230418
  Serious: No
  Sender: FDA-Public Use
  Company Number: US-drreddys-SPO/USA/23/0159847

PATIENT
  Age: 76 Year
  Sex: Male

DRUGS (7)
  1. LENALIDOMIDE [Suspect]
     Active Substance: LENALIDOMIDE
     Indication: Plasma cell myeloma
     Dosage: ON DAYS 1-14 THEN OFF FOR 14 DAYS, EVERY 28 DAYS
     Route: 048
  2. ASPIRIN [Concomitant]
     Active Substance: ASPIRIN
     Indication: Product used for unknown indication
  3. DECADRON [Concomitant]
     Active Substance: DEXAMETHASONE
     Indication: Product used for unknown indication
  4. BESIVANCE SUS 0.6 percent [Concomitant]
     Indication: Product used for unknown indication
     Dosage: SUS
  5. ILEVRO SUS 0.3 Percent [Concomitant]
     Indication: Product used for unknown indication
     Dosage: ILEVRO SUS
  6. LISINOPRIL TAB 40MG [Concomitant]
     Indication: Product used for unknown indication
  7. METOPROLOL T TAB 50MG [Concomitant]
     Indication: Product used for unknown indication

REACTIONS (1)
  - Feeling abnormal [Unknown]
